FAERS Safety Report 21456929 (Version 8)
Quarter: 2022Q4

REPORT INFORMATION
  Report Type: Report from Study
  Country: DE (occurrence: DE)
  Receive Date: 20221014
  Receipt Date: 20221130
  Transmission Date: 20230113
  Serious: Yes (Hospitalization, Other)
  Sender: FDA-Public Use
  Company Number: DE-BRISTOL-MYERS SQUIBB COMPANY-2022-120237

PATIENT
  Age: 31 Year
  Sex: Male
  Weight: 71 kg

DRUGS (54)
  1. PACLITAXEL [Suspect]
     Active Substance: PACLITAXEL
     Indication: Ductal adenocarcinoma of pancreas
     Dosage: CYCLE 1ALWAYS ON DAY 1,D8, D15 IN EACH CYCLE STRENGTH 125 MG/M2
     Route: 042
     Dates: start: 20220830, end: 20220913
  2. PACLITAXEL [Suspect]
     Active Substance: PACLITAXEL
     Dosage: CYCLE 2 ALWAYS ON DAY 1, D8, D15 IN EACH CYCLE STRENGTH 125 MG/M2
     Route: 042
     Dates: start: 20221006, end: 20221006
  3. AZACITIDINE [Suspect]
     Active Substance: AZACITIDINE
     Indication: Ductal adenocarcinoma of pancreas
     Dosage: ALWAYS ON D7 -D3 IN EACH CYCLE 30 MG/M2, 59.4 MILLIGRAMS / DAY (30 MILLIGRAMS/M?, D -7 TO D -3) IN C
     Route: 058
     Dates: start: 20220822, end: 20220826
  4. AZACITIDINE [Suspect]
     Active Substance: AZACITIDINE
     Dosage: 59.4 MILLIGRAMS / DAY (30 MILLIGRAMS/M?, D -7 TO D -3) IN CYCLE 2
     Route: 058
     Dates: start: 20220926, end: 20220927
  5. GEMCITABINE [Suspect]
     Active Substance: GEMCITABINE
     Indication: Ductal adenocarcinoma of pancreas
     Dosage: CYCLE 1ALWAYS ON DAY 1,D8, D15 IN EACH CYCLE STRENGTH 1000 MG/M2?1955.3 MILLIGRAMS / DAY
     Route: 042
     Dates: start: 20220830, end: 20220913
  6. GEMCITABINE [Suspect]
     Active Substance: GEMCITABINE
     Dosage: CYCLE 1ALWAYS ON DAY 1,D8, D15 IN EACH CYCLE STRENGTH 1000 MG/M2?1928.7 MILLIGRAMS / DAY
     Route: 042
     Dates: start: 20221006, end: 20221006
  7. CLINIMIX [ALANINE;ARGININE HYDROCHLORIDE;CALCIUM CHLORIDE;GLUCOSE;GLYC [Concomitant]
     Indication: Weight decreased
     Dosage: 1 X 1 LITRE IN 1 DAY // 1 LITRE
     Route: 042
     Dates: start: 20221021
  8. CERNEVIT [Concomitant]
     Active Substance: VITAMINS
     Indication: Weight decreased
     Dosage: 1 X 750 MILLIGRAM IN 1 DAY // 750 MILLIGRAM
     Route: 042
     Dates: start: 20221004, end: 20221008
  9. CERNEVIT [Concomitant]
     Active Substance: VITAMINS
     Dosage: 1 X 750 MILLIGRAM IN 1 DAY // 750 MILLIGRAM
     Route: 042
     Dates: start: 20221021
  10. ENOXAPARIN SODIUM [Concomitant]
     Active Substance: ENOXAPARIN SODIUM
     Indication: Thrombosis prophylaxis
     Dosage: 2 X 80 MILLIGRAM IN 1 DAY // 160 MILLIGRAM
     Route: 058
     Dates: start: 20220921, end: 20221020
  11. ENOXAPARIN SODIUM [Concomitant]
     Active Substance: ENOXAPARIN SODIUM
     Dosage: 2 X 70 MILLIGRAM IN 1 DAY // 140 MILLIGRAM
     Route: 058
     Dates: start: 20221021
  12. METOCLOPRAMIDE HYDROCHLORIDE [Concomitant]
     Active Substance: METOCLOPRAMIDE HYDROCHLORIDE
     Indication: Prophylaxis of nausea and vomiting
     Dosage: 3 X 10 MILLIGRAM IN 1 DAY // 30 MILLIGRAM
     Route: 048
     Dates: start: 20221011, end: 20221020
  13. METOCLOPRAMIDE HYDROCHLORIDE [Concomitant]
     Active Substance: METOCLOPRAMIDE HYDROCHLORIDE
     Indication: Abdominal distension
  14. FENTANYL [Concomitant]
     Active Substance: FENTANYL
     Indication: Abdominal pain
     Route: 062
     Dates: start: 20220930
  15. METAMIZOLE [Concomitant]
     Active Substance: METAMIZOLE
     Indication: Abdominal pain
     Route: 048
     Dates: start: 20220928, end: 20221007
  16. METAMIZOLE [Concomitant]
     Active Substance: METAMIZOLE
     Route: 042
     Dates: start: 20221011
  17. BISACODYL [Concomitant]
     Active Substance: BISACODYL
     Indication: Constipation
     Dosage: 2 X 5 MILLIGRAM IN 1 DAY // 10 MILLIGRAM
     Route: 048
     Dates: start: 20221011
  18. MOVICOL [Concomitant]
     Active Substance: POLYETHYLENE GLYCOL 3350\POTASSIUM CHLORIDE\SODIUM BICARBONATE\SODIUM CHLORIDE
     Indication: Constipation
     Route: 048
     Dates: start: 20221016
  19. DEXAMETHASONE [Concomitant]
     Active Substance: DEXAMETHASONE
     Indication: Prophylaxis of nausea and vomiting
     Dosage: 2 X 4 MILLIGRAM IN 1 DAY // 8 MILLIGRAM
     Route: 042
     Dates: start: 20221007, end: 20221009
  20. DEXAMETHASONE [Concomitant]
     Active Substance: DEXAMETHASONE
     Dosage: 2 X 4 MILLIGRAM IN 1 DAY // 8 MILLIGRAM
     Route: 048
     Dates: start: 20221018, end: 20221020
  21. NUTRIFLEX OMEGA SPECIAL [Concomitant]
     Indication: Weight decreased
     Dosage: 1 X 1875 MILLILITRE IN 1 DAY // 1875 MILLILITRE
     Route: 042
     Dates: start: 20221003, end: 20221008
  22. NUTRIFLEX OMEGA SPECIAL [Concomitant]
     Dosage: 1 X 1875 MILLILITRE IN 1 DAY // 1875 MILLILITRE
     Route: 042
     Dates: start: 20221020, end: 20221020
  23. NUTRIFLEX OMEGA SPECIAL [Concomitant]
     Dosage: 1 X 1250 MILLILITRE IN 1 DAY // 1250 MILLILITRE
     Route: 042
     Dates: start: 20221011, end: 20221019
  24. NUTRIFLEX OMEGA SPECIAL [Concomitant]
     Dosage: 1 X 1875 MILLILITRE IN 1 DAY // 1875 MILLILITRE
     Route: 042
     Dates: start: 20221002, end: 20221002
  25. PANTOPRAZOLE [Concomitant]
     Active Substance: PANTOPRAZOLE
     Indication: Gastrointestinal disorder prophylaxis
     Dosage: 1 X 40 MILLIGRAM IN 1 DAY // 40 MILLIGRAM
     Route: 048
     Dates: start: 20220929, end: 20221003
  26. PANTOPRAZOLE [Concomitant]
     Active Substance: PANTOPRAZOLE
     Dosage: 1 X 40 MILLIGRAM IN 1 DAY // 40 MILLIGRAM
     Route: 048
     Dates: start: 20221004
  27. MEROPENEM [Concomitant]
     Active Substance: MEROPENEM
     Indication: Infection
     Route: 042
     Dates: start: 20220928, end: 20221006
  28. LEVOMETHADONE [Concomitant]
     Active Substance: LEVOMETHADONE
     Indication: Abdominal pain
     Dosage: 5MG/ML, 1 ML
     Route: 048
     Dates: start: 20221005, end: 20221018
  29. LEVOMETHADONE [Concomitant]
     Active Substance: LEVOMETHADONE
     Dosage: 5MG/ML, 15 ML
     Route: 048
     Dates: start: 20221018
  30. MICROLAX [SODIUM CITRATE ACID;SODIUM LAURYL SULFATE;SORBITOL] [Concomitant]
     Indication: Constipation
     Dosage: 2 X 5 MILLILITRE IN 1 DAY // 10 MILLILITRE
     Route: 054
     Dates: start: 20221004, end: 20221004
  31. ZOPICLONE [Concomitant]
     Active Substance: ZOPICLONE
     Indication: Insomnia
     Dosage: 1 X 3.75 MILLIGRAM IN 1 DAY // 3.75 MILLIGRAM
     Route: 048
     Dates: start: 20221003, end: 20221004
  32. ZOFRAN [Concomitant]
     Active Substance: ONDANSETRON HYDROCHLORIDE
     Indication: Prophylaxis of nausea and vomiting
     Dosage: X 4 MILLIGRAM IN  AS NECESSARY //  AS NECESSARY
     Route: 048
     Dates: start: 20221004, end: 20221005
  33. DIMENHYDRINATE [Concomitant]
     Active Substance: DIMENHYDRINATE
     Indication: Prophylaxis of nausea and vomiting
     Dosage: X 62 MILLIGRAM IN  AS NECESSARY //  AS NECESSARY
     Route: 042
     Dates: start: 20221005, end: 20221005
  34. CIPROFLOXACIN [Concomitant]
     Active Substance: CIPROFLOXACIN
     Indication: Infection
     Dosage: AS NEEDED
     Route: 048
     Dates: start: 20221005, end: 20221011
  35. NOVALGIN (METAMIZOLE SODIUM) [Concomitant]
     Active Substance: METAMIZOLE SODIUM
     Indication: Pain
     Dosage: 4 X 0.75 GRAM IN 1 DAY // 3 GRAM
     Route: 048
  36. LACTULOSE [Concomitant]
     Active Substance: LACTULOSE
     Indication: Subileus
     Dosage: 1 X 6.67 GRAM IN 1 DAY // 6.67 GRAM
     Route: 048
  37. LACTULOSE [Concomitant]
     Active Substance: LACTULOSE
     Indication: Prophylaxis
  38. FRESUBIN [CAFFEINE;CARBOHYDRATES NOS;FATS NOS;FIBRE, DIETARY;MINERALS [Concomitant]
     Indication: Malnutrition
     Dosage: 200 MILLILITRE IN  AS NECESSARY
     Route: 048
     Dates: start: 20220825
  39. FRESUBIN [CAFFEINE;CARBOHYDRATES NOS;FATS NOS;FIBRE, DIETARY;MINERALS [Concomitant]
     Dosage: 200 MILLILITRE IN  AS NECESSARY
     Route: 048
     Dates: start: 20220822
  40. DULCOLAX (BISACODYL) [Concomitant]
     Active Substance: BISACODYL
     Indication: Constipation
     Dosage: 1 X 10 MILLIGRAM IN 1 DAY // 10 MILLIGRAM
     Route: 054
     Dates: start: 20221015, end: 20221015
  41. DULCOLAX (BISACODYL) [Concomitant]
     Active Substance: BISACODYL
     Indication: Subileus
  42. PANCRELIPASE [Concomitant]
     Active Substance: PANCRELIPASE
     Indication: Pancreatic enzyme abnormality
     Dosage: 12 X 25000 IU (INTERNATIONAL UNIT) IN 1 DAY // 300000 IU (INTERNATIONAL UNIT)
     Route: 048
     Dates: start: 20220830
  43. PANCRELIPASE [Concomitant]
     Active Substance: PANCRELIPASE
     Dosage: 6 X 25000 IU (INTERNATIONAL UNIT) IN 1 DAY // 150000 IU (INTERNATIONAL UNIT
     Route: 048
     Dates: start: 20221011
  44. LEFAX [SIMETICONE] [Concomitant]
     Indication: Flatulence
     Dosage: X 250 MILLIGRAM IN  AS NECESSARY
     Route: 048
     Dates: start: 20220830
  45. LEFAX [SIMETICONE] [Concomitant]
     Dosage: 6 X 42 MILLIGRAM IN 1 DAY // 252 MILLIGRAM
     Route: 048
     Dates: start: 20221011, end: 20221019
  46. LYRICA [Concomitant]
     Active Substance: PREGABALIN
     Indication: Pain
     Dosage: 3 X 25 MILLIGRAM IN 1 DAY // 75 MILLIGRAM
     Route: 048
     Dates: start: 20221002
  47. ADDEL N [CHROMIC CHLORIDE;COPPER CHLORIDE;FERROUS CHLORIDE;MANGANESE C [Concomitant]
     Indication: Weight decreased
     Dosage: 1 X 10 MILLILITRE IN 1 DAY // 10 MILLILITRE
     Route: 042
     Dates: start: 20221021
  48. ADDEL N [CHROMIC CHLORIDE;COPPER CHLORIDE;FERROUS CHLORIDE;MANGANESE C [Concomitant]
     Dosage: 1 X 10 MILLILITRE IN 1 DAY // 10 MILLILITRE
     Route: 042
     Dates: start: 20221004, end: 20221008
  49. SODIUM PHOSPHATE, DIBASIC\SODIUM PHOSPHATE, MONOBASIC, ANHYDROUS [Concomitant]
     Active Substance: SODIUM PHOSPHATE, DIBASIC\SODIUM PHOSPHATE, MONOBASIC, ANHYDROUS
     Indication: Constipation
     Dosage: 1 X 130 MILLILITRE IN 1 DAY // 130 MILLILITRE
     Route: 054
     Dates: start: 20221015, end: 20221015
  50. SODIUM PHOSPHATE, DIBASIC\SODIUM PHOSPHATE, MONOBASIC, ANHYDROUS [Concomitant]
     Active Substance: SODIUM PHOSPHATE, DIBASIC\SODIUM PHOSPHATE, MONOBASIC, ANHYDROUS
     Dosage: 1 X 130 MILLILITRE IN 1 DAY // 130 MILLILITRE
     Route: 054
     Dates: start: 20221005, end: 20221005
  51. NALOXEGOL OXALATE [Concomitant]
     Active Substance: NALOXEGOL OXALATE
     Indication: Constipation
     Dosage: 1 X 25 MILLIGRAM IN 1 DAY // 25 MILLIGRAM
     Route: 048
     Dates: start: 20221011
  52. CALCIUM CHLORIDE\MAGNESIUM CHLORIDE\POTASSIUM CHLORIDE\SODIUM ACETATE\ [Concomitant]
     Active Substance: CALCIUM CHLORIDE\MAGNESIUM CHLORIDE\POTASSIUM CHLORIDE\SODIUM ACETATE\SODIUM CHLORIDE
     Indication: Prophylaxis against dehydration
     Dosage: 3 X 500 MILLILITRE IN 1 DAY // 1500 MILLILITRE
     Route: 042
     Dates: start: 20221011, end: 20221014
  53. LACTULOSE [Concomitant]
     Active Substance: LACTULOSE
     Indication: Constipation
     Dosage: 1 X 20 MILLILITRE IN 1 DAY // 20 MILLILITRE
     Route: 048
     Dates: start: 20221016, end: 20221016
  54. MIRTAZAPINE [Concomitant]
     Active Substance: MIRTAZAPINE
     Indication: Insomnia
     Dosage: 1 X 7.5 MILLIGRAM IN 1 DAY // 7.5 MILLIGRAM
     Route: 048
     Dates: start: 20221021

REACTIONS (1)
  - Pancreas infection [Recovered/Resolved]

NARRATIVE: CASE EVENT DATE: 20221011
